FAERS Safety Report 6936810-6 (Version None)
Quarter: 2010Q3

REPORT INFORMATION
  Report Type: 
  Country: None (occurrence: None)
  Receive Date: 20100818
  Receipt Date: 20100812
  Transmission Date: 20110219
  Serious: Yes (Hospitalization)
  Sender: FDA-Public Use
  Company Number: 2010PL000085

PATIENT
  Age: 33 Year
  Sex: Female

DRUGS (1)
  1. IMURAN [Suspect]
     Indication: PRODUCT USED FOR UNKNOWN INDICATION

REACTIONS (6)
  - ABSCESS [None]
  - CHOLECYSTECTOMY [None]
  - COLECTOMY [None]
  - DRUG INEFFECTIVE [None]
  - OOPHORECTOMY [None]
  - SURGERY [None]
